FAERS Safety Report 9822243 (Version 3)
Quarter: 2014Q1

REPORT INFORMATION
  Report Type: Report from Study
  Country: JP (occurrence: JP)
  Receive Date: 20140116
  Receipt Date: 20140131
  Transmission Date: 20141002
  Serious: Yes (Hospitalization)
  Sender: FDA-Public Use
  Company Number: JP-ABBVIE-14P-087-1190854-00

PATIENT
  Age: 79 Year
  Sex: Male
  Weight: 59 kg

DRUGS (6)
  1. LEUPRORELIN [Suspect]
     Indication: PROSTATE CANCER
     Route: 058
     Dates: start: 20130206, end: 20130723
  2. LYRICA [Concomitant]
     Indication: PRODUCT USED FOR UNKNOWN INDICATION
     Dates: start: 20120511
  3. MOHRUS [Concomitant]
     Indication: PRODUCT USED FOR UNKNOWN INDICATION
     Dates: start: 20120515
  4. SUMILU [Concomitant]
     Indication: PRODUCT USED FOR UNKNOWN INDICATION
     Dates: start: 20120515
  5. BICALUTAMID [Concomitant]
     Indication: PRODUCT USED FOR UNKNOWN INDICATION
     Dates: start: 20120613
  6. THYRADIN S [Concomitant]
     Indication: PRODUCT USED FOR UNKNOWN INDICATION
     Dates: start: 20130621

REACTIONS (1)
  - Chondrocalcinosis pyrophosphate [Recovering/Resolving]
